FAERS Safety Report 6615912-8 (Version None)
Quarter: 2010Q1

REPORT INFORMATION
  Report Type: 
  Country: None (occurrence: None)
  Receive Date: 20100305
  Receipt Date: 20100301
  Transmission Date: 20100710
  Serious: Yes (Other)
  Sender: FDA-Public Use
  Company Number: US-ELI_LILLY_AND_COMPANY-US201003001306

PATIENT
  Age: 89 Year
  Sex: Male

DRUGS (9)
  1. HUMULIN N [Suspect]
     Indication: DIABETES MELLITUS
     Dosage: 16 U, EACH MORNING
  2. HUMULIN N [Suspect]
     Dosage: 14 U, EACH EVENING
  3. TOOPRIN [Concomitant]
  4. CELEBREX [Concomitant]
  5. POTASSIUM [Concomitant]
  6. LESCOL [Concomitant]
  7. BETAPACE [Concomitant]
  8. COUMADIN [Concomitant]
  9. FLOMAX [Concomitant]

REACTIONS (2)
  - CARDIAC PACEMAKER INSERTION [None]
  - DIZZINESS POSTURAL [None]
